FAERS Safety Report 16502453 (Version 1)
Quarter: 2019Q3

REPORT INFORMATION
  Report Type: Spontaneous
  Country: US (occurrence: US)
  Receive Date: 20190701
  Receipt Date: 20190701
  Transmission Date: 20191004
  Serious: No
  Sender: FDA-Public Use
  Company Number: US-GALDERMA-US18046116

PATIENT
  Age: 21 Year
  Sex: Female

DRUGS (5)
  1. PROACTIV EYE BRIGHTENING SERUM [Concomitant]
     Active Substance: COSMETICS
     Indication: SCAR
     Route: 061
     Dates: start: 20181006, end: 20181016
  2. PROACTIV DAILY PROTECTION PLUS SUNSCREEN SPF 30 [Concomitant]
     Indication: SCAR
     Route: 061
     Dates: start: 20181006, end: 20181016
  3. PROACTIV MD ADAPALENE ACNE TREATMENT [Suspect]
     Active Substance: ADAPALENE
     Indication: SCAR
     Dosage: 0.1%
     Route: 061
     Dates: start: 20181006, end: 20181016
  4. PROACTIV MD DEEP CLEANSING FACE WASH [Concomitant]
     Active Substance: COSMETICS
     Indication: SCAR
     Route: 061
     Dates: start: 20181006, end: 20181016
  5. PROACTIV MOISTURE REPAIR [Concomitant]
     Active Substance: COSMETICS
     Indication: SCAR
     Route: 061
     Dates: start: 20181006, end: 20181016

REACTIONS (3)
  - Dry skin [Recovered/Resolved]
  - Product use in unapproved indication [Recovered/Resolved]
  - Skin burning sensation [Recovered/Resolved]

NARRATIVE: CASE EVENT DATE: 20181006
